FAERS Safety Report 8257464-5 (Version None)
Quarter: 2012Q1

REPORT INFORMATION
  Report Type: 
  Country: None (occurrence: None)
  Receive Date: 20120330
  Receipt Date: 20120330
  Transmission Date: 20120608
  Serious: Yes (Other)
  Sender: FDA-Public Use
  Company Number: None

PATIENT
  Age: 33 Year
  Sex: Female
  Weight: 86.637 kg

DRUGS (1)
  1. PHENTERMINE [Suspect]
     Indication: OVERWEIGHT
     Dosage: 1 DAILY MOUTH
     Route: 048

REACTIONS (2)
  - DYSPNOEA [None]
  - CHEST PAIN [None]
